FAERS Safety Report 16844535 (Version 1)
Quarter: 2019Q3

REPORT INFORMATION
  Report Type: Spontaneous
  Country: US (occurrence: US)
  Receive Date: 20190802
  Receipt Date: 20190802
  Transmission Date: 20191005
  Serious: No
  Sender: FDA-Public Use
  Company Number: None

PATIENT
  Age: 60 Year
  Sex: Male

DRUGS (1)
  1. OCRELIZUMAB 300 MG IV [Suspect]
     Active Substance: OCRELIZUMAB
     Indication: MULTIPLE SCLEROSIS
     Route: 042
     Dates: start: 20190508, end: 20190522

REACTIONS (3)
  - Coronary artery bypass [None]
  - Flushing [None]
  - Coronary artery disease [None]

NARRATIVE: CASE EVENT DATE: 20190522
